FAERS Safety Report 5339089-4 (Version None)
Quarter: 2007Q2

REPORT INFORMATION
  Report Type: 
  Country: None (occurrence: None)
  Receive Date: 20070330
  Receipt Date: 20060317
  Transmission Date: 20071010
  Serious: Yes (Other)
  Sender: FDA-Public Use
  Company Number: PHEH2006US03198

PATIENT
  Age: 60 Year
  Sex: Female

DRUGS (1)
  1. VIVELLE-DOT [Suspect]
     Indication: HORMONE REPLACEMENT THERAPY
     Dosage: 0.5 MG, 2X WEEK, TRANSDERMAL
     Route: 062
     Dates: end: 20051201

REACTIONS (3)
  - BREAST CANCER [None]
  - CHEMOTHERAPY [None]
  - RADIOTHERAPY [None]
